FAERS Safety Report 5708926-3 (Version None)
Quarter: 2008Q2

REPORT INFORMATION
  Report Type: 
  Country: None (occurrence: None)
  Receive Date: 20080416
  Receipt Date: 20080403
  Transmission Date: 20081010
  Serious: Yes (Hospitalization)
  Sender: FDA-Public Use
  Company Number: 8031406

PATIENT
  Age: 72 Year
  Sex: Male
  Weight: 90 kg

DRUGS (7)
  1. KEPPRA [Suspect]
  2. CAMPTOSAR [Suspect]
     Indication: GLIOBLASTOMA MULTIFORME
     Dosage: 125 MG 1/2W IV
     Route: 042
     Dates: start: 20071003
  3. AVASTIN [Suspect]
     Indication: GLIOBLASTOMA
     Dosage: 10 MG/KG 1/2W
     Dates: start: 20071003
  4. LASIX [Suspect]
  5. COLACE [Concomitant]
  6. DECADRON [Concomitant]
  7. PRILOSEC [Concomitant]

REACTIONS (14)
  - ASTHENIA [None]
  - DEEP VEIN THROMBOSIS [None]
  - DYSPNOEA EXERTIONAL [None]
  - EMBOLISM [None]
  - FATIGUE [None]
  - HAEMATOCRIT DECREASED [None]
  - HAEMOGLOBIN DECREASED [None]
  - LEFT VENTRICULAR DYSFUNCTION [None]
  - MALAISE [None]
  - OEDEMA PERIPHERAL [None]
  - PERICARDIAL EFFUSION [None]
  - PHARYNGEAL OEDEMA [None]
  - PITTING OEDEMA [None]
  - THROMBOSIS [None]
